FAERS Safety Report 9551456 (Version 1)
Quarter: 2013Q3

REPORT INFORMATION
  Report Type: Spontaneous
  Country: US (occurrence: None)
  Receive Date: 20130724
  Receipt Date: 20130724
  Transmission Date: 20140515
  Serious: Yes (Death, Other)
  Sender: FDA-Public Use
  Company Number: PHEH2013US006619

PATIENT
  Age: 66 Year
  Sex: Male
  Weight: 78 kg

DRUGS (1)
  1. AFINITOR (RAD) TABLET, 10MG [Suspect]
     Indication: NEUROENDOCRINE TUMOUR
     Route: 048
     Dates: start: 20121115, end: 20121122

REACTIONS (3)
  - Pancreatic neuroendocrine tumour [None]
  - Malignant neoplasm progression [None]
  - Gastrointestinal haemorrhage [None]
